FAERS Safety Report 8248426-2 (Version None)
Quarter: 2012Q1

REPORT INFORMATION
  Report Type: 
  Country: None (occurrence: None)
  Receive Date: 20120330
  Receipt Date: 20120321
  Transmission Date: 20120608
  Serious: Yes (Other)
  Sender: FDA-Public Use
  Company Number: US-ELI_LILLY_AND_COMPANY-US201203006584

PATIENT
  Age: 70 Year
  Sex: Male

DRUGS (2)
  1. BYETTA [Suspect]
     Indication: DIABETES MELLITUS
     Dosage: UNK
     Route: 058
     Dates: start: 20020101
  2. BYETTA [Suspect]
     Dosage: 10 UG, UNK
     Route: 058

REACTIONS (3)
  - SLEEP APNOEA SYNDROME [None]
  - ENCEPHALITIS VIRAL [None]
  - MEMORY IMPAIRMENT [None]
